FAERS Safety Report 17767194 (Version 11)
Quarter: 2020Q3

REPORT INFORMATION
  Report Type: Report from Study
  Country: CO (occurrence: CO)
  Receive Date: 20200511
  Receipt Date: 20200907
  Transmission Date: 20201102
  Serious: Yes (Hospitalization, Other)
  Sender: FDA-Public Use
  Company Number: CO-BRISTOL-MYERS SQUIBB COMPANY-BMS-2020-032169

PATIENT
  Age: 47 Year
  Sex: Male
  Weight: 118 kg

DRUGS (5)
  1. YERVOY [Suspect]
     Active Substance: IPILIMUMAB
     Indication: RENAL CANCER
     Dosage: 118 MILLIGRAM, Q3WK
     Route: 042
     Dates: start: 20200310, end: 20200512
  2. PNEUMOCOCCAL VACCINE POLYVALENT NOS [Concomitant]
     Active Substance: PNEUMOCOCCAL VACCINE POLYVALENT
     Indication: PNEUMOCOCCAL INFECTION
     Dosage: UNK
     Route: 065
     Dates: start: 20200706
  3. NIVOLUMAB [Suspect]
     Active Substance: NIVOLUMAB
     Indication: RENAL CANCER
     Dosage: 354 MILLIGRAM, Q3WK
     Route: 042
     Dates: start: 20200310
  4. NIVOLUMAB [Suspect]
     Active Substance: NIVOLUMAB
     Dosage: 480 MILLIGRAM, Q4WK
     Route: 042
     Dates: start: 20200612, end: 20200712
  5. INFLUENZA VACCINES [Concomitant]
     Active Substance: INFLUENZA VIRUS VACCINE
     Indication: INFLUENZA
     Dosage: UNK
     Route: 065
     Dates: start: 20200706

REACTIONS (17)
  - Hyperhidrosis [Recovered/Resolved]
  - Nasopharyngitis [Recovering/Resolving]
  - Erythema [Recovering/Resolving]
  - Paraesthesia [Recovering/Resolving]
  - Headache [Unknown]
  - Cortisol abnormal [Recovering/Resolving]
  - Myalgia [Recovering/Resolving]
  - Viral infection [Unknown]
  - Back pain [Recovered/Resolved]
  - Respiratory disorder [Recovering/Resolving]
  - Productive cough [Unknown]
  - Cortisol decreased [Recovering/Resolving]
  - Pneumonia [Recovering/Resolving]
  - Hypersensitivity [Recovered/Resolved]
  - Chest pain [Recovering/Resolving]
  - Tachycardia [Recovered/Resolved]
  - Arthralgia [Recovering/Resolving]

NARRATIVE: CASE EVENT DATE: 20200406
